FAERS Safety Report 6015602-9 (Version None)
Quarter: 2008Q4

REPORT INFORMATION
  Report Type: 
  Country: None (occurrence: None)
  Receive Date: 20081218
  Receipt Date: 20081204
  Transmission Date: 20090506
  Serious: Yes (Other)
  Sender: FDA-Public Use
  Company Number: AR-1168041

PATIENT

DRUGS (2)
  1. VIGAMOX [Suspect]
     Route: 047
  2. MAXIDEX [Suspect]
     Route: 047

REACTIONS (3)
  - CORNEAL DISORDER [None]
  - KERATITIS [None]
  - VISUAL ACUITY REDUCED [None]
